FAERS Safety Report 10705570 (Version 1)
Quarter: 2015Q1

REPORT INFORMATION
  Report Type: Spontaneous
  Country: IL (occurrence: IL)
  Receive Date: 20150112
  Receipt Date: 20150112
  Transmission Date: 20150721
  Serious: Yes (Hospitalization)
  Sender: FDA-Public Use
  Company Number: US-ASTRAZENECA-2015SE02691

PATIENT
  Age: 119 Day
  Sex: Female

DRUGS (2)
  1. SYNAGIS [Suspect]
     Active Substance: PALIVIZUMAB
     Indication: ANTIVIRAL PROPHYLAXIS
     Dosage: 2ND DOSE
     Route: 030
  2. SYNAGIS [Suspect]
     Active Substance: PALIVIZUMAB
     Indication: ANTIVIRAL PROPHYLAXIS
     Dosage: 1ST DOSE
     Route: 030

REACTIONS (8)
  - Cyanosis [Unknown]
  - Bronchiolitis [Unknown]
  - Apnoea [Unknown]
  - Cough [Unknown]
  - Periorbital oedema [Unknown]
  - Rhinitis [Unknown]
  - Oxygen saturation decreased [Recovered/Resolved]
  - Respiratory syncytial virus test positive [Unknown]

NARRATIVE: CASE EVENT DATE: 20141204
